FAERS Safety Report 10640084 (Version 1)
Quarter: 2014Q4

REPORT INFORMATION
  Report Type: Spontaneous
  Country: US (occurrence: None)
  Receive Date: 20141205
  Receipt Date: 20141205
  Transmission Date: 20150529
  Serious: No
  Sender: FDA-Public Use
  Company Number: None

PATIENT

DRUGS (1)
  1. ATIVAN [Suspect]
     Active Substance: LORAZEPAM

REACTIONS (30)
  - Suicidal ideation [None]
  - Aggression [None]
  - Physical assault [None]
  - Drug withdrawal syndrome [None]
  - Nausea [None]
  - Drug interaction [None]
  - Abdominal pain upper [None]
  - Lymphoedema [None]
  - Feeling abnormal [None]
  - Vertigo [None]
  - Anger [None]
  - Mental impairment [None]
  - Depression [None]
  - Neuropathy peripheral [None]
  - Pulmonary pain [None]
  - Vomiting [None]
  - Bedridden [None]
  - Feeding disorder [None]
  - Dysphagia [None]
  - Decreased appetite [None]
  - Social avoidant behaviour [None]
  - Gastrointestinal pain [None]
  - White blood cell count decreased [None]
  - Urticaria [None]
  - Agoraphobia [None]
  - Inflammation [None]
  - Dissociative disorder [None]
  - Pain [None]
  - Crying [None]
  - Hallucination, auditory [None]

NARRATIVE: CASE EVENT DATE: 2014
